FAERS Safety Report 4479363-7 (Version None)
Quarter: 2004Q4

REPORT INFORMATION
  Report Type: 
  Country: None (occurrence: None)
  Receive Date: 20041019
  Receipt Date: 20041019
  Transmission Date: 20050328
  Serious: Yes (Other)
  Sender: FDA-Public Use
  Company Number: None

PATIENT
  Age: 41 Year
  Sex: Female
  Weight: 70.3075 kg

DRUGS (12)
  1. ZYBAN [Suspect]
     Indication: SMOKING CESSATION THERAPY
     Dosage: QD X 3 D , THEN BID
     Dates: start: 20040823
  2. ACCUPRIL [Concomitant]
  3. ZOLOFT [Concomitant]
  4. FLOVENT (GLUTICASONE PROPIONATE ) INHAL [Concomitant]
  5. ALBUTEROL [Concomitant]
  6. MIDRIN (APAP-ISOMETHEPTENE-DICHLORAL) [Concomitant]
  7. YASMIN [Concomitant]
  8. ATARAX [Concomitant]
  9. ALLEGRA (FEXOFENADINE HCL) [Concomitant]
  10. FLONASE(FLUTICASONE PROPIONATE (NASAL)) [Concomitant]
  11. ADVAIR DISKUS (SALMETEROL-FLUTICASONE) [Concomitant]
  12. LORCET-HD (HYDROCODONE-ACETEMINOPHEN) [Concomitant]

REACTIONS (4)
  - HYPOMANIA [None]
  - INSOMNIA [None]
  - OVARIAN CYST [None]
  - PELVIC PAIN [None]
